FAERS Safety Report 4966035-5 (Version None)
Quarter: 2006Q2

REPORT INFORMATION
  Report Type: 
  Country: None (occurrence: None)
  Receive Date: 20060403
  Receipt Date: 20060221
  Transmission Date: 20061013
  Serious: Yes (Hospitalization)
  Sender: FDA-Public Use
  Company Number: DE-2005-018238

PATIENT
  Age: 51 Year
  Sex: Female

DRUGS (3)
  1. BETASERON [Suspect]
     Indication: RELAPSING-REMITTING MULTIPLE SCLEROSIS
     Dosage: 8 OR 16 MIU, EVERY 2D, SUBCUTANEOUS
     Route: 058
     Dates: start: 20050127
  2. IBUPROFEN [Concomitant]
  3. COPAXONE [Suspect]

REACTIONS (4)
  - ARRHYTHMIA [None]
  - CORONARY ARTERY EMBOLISM [None]
  - EMBOLIC STROKE [None]
  - LOSS OF CONSCIOUSNESS [None]
